FAERS Safety Report 7580832-1 (Version None)
Quarter: 2011Q2

REPORT INFORMATION
  Report Type: 
  Country: None (occurrence: None)
  Receive Date: 20110629
  Receipt Date: 20110627
  Transmission Date: 20111010
  Serious: Yes (Other)
  Sender: FDA-Public Use
  Company Number: GB-PFIZER INC-2011143282

PATIENT
  Age: 36 Year
  Sex: Male

DRUGS (3)
  1. CODEINE [Concomitant]
     Indication: BACK PAIN
     Dosage: 30 MG, 4X/DAY
     Route: 048
     Dates: start: 20110527, end: 20110601
  2. VARENICLINE TARTRATE [Suspect]
     Indication: SMOKING CESSATION THERAPY
     Dosage: 500 MG, 1X/DAY
     Route: 048
     Dates: start: 20110505, end: 20110101
  3. VARENICLINE TARTRATE [Suspect]
     Dosage: 1 MG, 1X/DAY
     Route: 048
     Dates: start: 20110101, end: 20110609

REACTIONS (2)
  - DEPRESSED MOOD [None]
  - CONFUSIONAL STATE [None]
